FAERS Safety Report 11097260 (Version 1)
Quarter: 2015Q2

REPORT INFORMATION
  Report Type: Spontaneous
  Country: IE (occurrence: IE)
  Receive Date: 20150507
  Receipt Date: 20150507
  Transmission Date: 20150821
  Serious: Yes (Other)
  Sender: FDA-Public Use
  Company Number: IE-UCBSA-2015013668

PATIENT
  Age: 31 Year
  Sex: Male

DRUGS (4)
  1. TRAMADOL [Concomitant]
     Active Substance: TRAMADOL
     Indication: PRODUCT USED FOR UNKNOWN INDICATION
  2. MELCAM [Concomitant]
     Indication: PRODUCT USED FOR UNKNOWN INDICATION
  3. CIMZIA [Suspect]
     Active Substance: CERTOLIZUMAB PEGOL
     Dosage: 200 MG, EV 2 WEEKS(QOW)
     Route: 058
     Dates: start: 20150422, end: 201504
  4. CIMZIA [Suspect]
     Active Substance: CERTOLIZUMAB PEGOL
     Indication: SPONDYLITIS
     Dosage: 400 MG, EV 2 WEEKS(QOW), 0,2,4 WEEKS
     Route: 058
     Dates: start: 20150311, end: 201504

REACTIONS (5)
  - Headache [Unknown]
  - Back pain [Unknown]
  - Rash [Unknown]
  - Pharyngitis [Unknown]
  - Vomiting [Unknown]

NARRATIVE: CASE EVENT DATE: 201503
